FAERS Safety Report 5726840-4 (Version None)
Quarter: 2008Q2

REPORT INFORMATION
  Report Type: 
  Country: None (occurrence: None)
  Receive Date: 20080502
  Receipt Date: 20080421
  Transmission Date: 20081010
  Serious: Yes (Disabling, Other)
  Sender: FDA-Public Use
  Company Number: US-PFIZER INC-2008034964

PATIENT
  Sex: Female

DRUGS (5)
  1. XANAX [Suspect]
     Indication: EMOTIONAL DISORDER
     Route: 048
  2. EFFEXOR [Concomitant]
  3. SEROQUEL [Concomitant]
  4. ZYPREXA [Concomitant]
  5. LEXAPRO [Concomitant]

REACTIONS (6)
  - ADVERSE DRUG REACTION [None]
  - AMNESIA [None]
  - DEPRESSION [None]
  - DISABILITY [None]
  - MUSCLE TWITCHING [None]
  - TREMOR [None]
